FAERS Safety Report 11393321 (Version 1)
Quarter: 2015Q3

REPORT INFORMATION
  Report Type: Spontaneous
  Country: GR (occurrence: GR)
  Receive Date: 20150818
  Receipt Date: 20150818
  Transmission Date: 20151125
  Serious: Yes (Hospitalization)
  Sender: FDA-Public Use
  Company Number: PHHY2015GR099408

PATIENT
  Age: 44 Year
  Sex: Female

DRUGS (4)
  1. METHYLPREDNISOLONE. [Suspect]
     Active Substance: METHYLPREDNISOLONE
     Indication: CHRONIC KIDNEY DISEASE
  2. MYCOPHENOLATE MOFETIL. [Suspect]
     Active Substance: MYCOPHENOLATE MOFETIL
     Indication: SYSTEMIC LUPUS ERYTHEMATOSUS
     Dosage: 500 MG, BID
     Route: 065
  3. MYCOPHENOLATE MOFETIL. [Suspect]
     Active Substance: MYCOPHENOLATE MOFETIL
     Indication: CHRONIC KIDNEY DISEASE
  4. METHYLPREDNISOLONE. [Suspect]
     Active Substance: METHYLPREDNISOLONE
     Indication: SYSTEMIC LUPUS ERYTHEMATOSUS
     Dosage: 8 MG, QD
     Route: 065

REACTIONS (15)
  - Chills [Recovering/Resolving]
  - Productive cough [Recovering/Resolving]
  - Malaise [Recovering/Resolving]
  - Pyrexia [Recovering/Resolving]
  - Inflammatory marker increased [Recovering/Resolving]
  - Pneumonia [Recovering/Resolving]
  - Renal impairment [Recovering/Resolving]
  - Brain abscess [Recovering/Resolving]
  - Lung infection [Recovering/Resolving]
  - Lymphopenia [Recovering/Resolving]
  - Rales [Recovering/Resolving]
  - Leukocytosis [Recovering/Resolving]
  - Thrombocytopenia [Recovering/Resolving]
  - Myalgia [Recovering/Resolving]
  - Nocardiosis [Recovering/Resolving]
